FAERS Safety Report 8380495-1 (Version None)
Quarter: 2012Q2

REPORT INFORMATION
  Report Type: 
  Country: None (occurrence: None)
  Receive Date: 20120523
  Receipt Date: 20120514
  Transmission Date: 20120825
  Serious: Yes (Other)
  Sender: FDA-Public Use
  Company Number: JP-GLAXOSMITHKLINE-B0802178A

PATIENT

DRUGS (3)
  1. HIRNAMIN [Concomitant]
     Route: 065
  2. LAMICTAL [Suspect]
     Indication: BIPOLAR DISORDER
     Dosage: 100MG PER DAY
     Route: 048
  3. LAMICTAL [Suspect]
     Route: 048

REACTIONS (2)
  - TONGUE PARALYSIS [None]
  - EXTRAPYRAMIDAL DISORDER [None]
